FAERS Safety Report 10252890 (Version 4)
Quarter: 2015Q2

REPORT INFORMATION
  Report Type: Spontaneous
  Country: US (occurrence: US)
  Receive Date: 20140623
  Receipt Date: 20150529
  Transmission Date: 20150821
  Serious: Yes (Other)
  Sender: FDA-Public Use
  Company Number: US-009507513-1406USA008204

PATIENT
  Age: 63 Year
  Sex: Male
  Weight: 68.27 kg

DRUGS (2)
  1. REBETOL [Suspect]
     Active Substance: RIBAVIRIN
     Indication: HEPATITIS C
     Dosage: UNK, 1000 MG
     Route: 048
     Dates: end: 2014
  2. PEGINTRON [Suspect]
     Active Substance: PEGINTERFERON ALFA-2B
     Indication: HEPATITIS C
     Dosage: 0.4 ML, QW, STRENGTH ^120^- NO UNITS
     Route: 058
     Dates: start: 20140411

REACTIONS (16)
  - Hypoacusis [Recovered/Resolved]
  - Dizziness [Recovered/Resolved]
  - Paraesthesia [Recovered/Resolved]
  - Anaemia [Unknown]
  - Hypoacusis [Unknown]
  - Bone disorder [Recovered/Resolved]
  - Pain in extremity [Recovered/Resolved]
  - Drug dose omission [Unknown]
  - Product quality issue [Unknown]
  - Visual acuity reduced [Recovered/Resolved]
  - Leukopenia [Unknown]
  - Paraesthesia [Unknown]
  - Discomfort [Unknown]
  - Hypoaesthesia [Recovered/Resolved]
  - Feeling abnormal [Recovered/Resolved]
  - Anaemia [Recovered/Resolved]

NARRATIVE: CASE EVENT DATE: 2014
